FAERS Safety Report 5034043-4 (Version None)
Quarter: 2006Q2

REPORT INFORMATION
  Report Type: 
  Country: None (occurrence: None)
  Receive Date: 20060626
  Receipt Date: 20060612
  Transmission Date: 20061013
  Serious: Yes (Hospitalization)
  Sender: FDA-Public Use
  Company Number: US-AMGEN-STX182767

PATIENT
  Sex: Female

DRUGS (2)
  1. ENBREL [Suspect]
     Indication: PSORIATIC ARTHROPATHY
     Route: 058
     Dates: start: 20030101, end: 20050901
  2. ENBREL [Suspect]
     Indication: PSORIASIS

REACTIONS (4)
  - CONDITION AGGRAVATED [None]
  - HYSTERECTOMY [None]
  - PSORIASIS [None]
  - PUSTULAR PSORIASIS [None]
